FAERS Safety Report 7910513-3 (Version None)
Quarter: 2011Q4

REPORT INFORMATION
  Report Type: 
  Country: None (occurrence: None)
  Receive Date: 20111111
  Receipt Date: 20111028
  Transmission Date: 20120403
  Serious: Yes (Other)
  Sender: FDA-Public Use
  Company Number: PHFR2011IE04599

PATIENT
  Sex: Male

DRUGS (8)
  1. CLOZARIL [Suspect]
     Indication: SCHIZOPHRENIA
     Dosage: 350 MG, DAILY
     Route: 048
     Dates: start: 19940101
  2. VALPROIC ACID [Concomitant]
     Dosage: 600 MG, DAILY
     Route: 048
     Dates: start: 20100101
  3. FYBOGEL [Concomitant]
     Dosage: 15 ML, DAILY
     Route: 048
     Dates: start: 20060101
  4. CLONAZEPAM [Concomitant]
     Dosage: 0.5 MG, DAILY
     Route: 048
     Dates: start: 20100101
  5. DELTACORTRIL [Concomitant]
     Dosage: 30 M, QW
     Route: 065
  6. XYZAL [Concomitant]
     Dosage: 5 MG, DAILY
     Route: 061
  7. KWELLS [Concomitant]
     Dosage: 1 DF, DAILY
     Route: 048
     Dates: start: 20050101
  8. CITALOPRAM HYDROBROMIDE [Concomitant]
     Dosage: 20 MG, DAILY
     Route: 048
     Dates: start: 20090101

REACTIONS (2)
  - RASH [None]
  - ALLERGY TO METALS [None]
